FAERS Safety Report 20982936 (Version 1)
Quarter: 2022Q2

REPORT INFORMATION
  Report Type: Spontaneous
  Country: US (occurrence: US)
  Receive Date: 20220620
  Receipt Date: 20220620
  Transmission Date: 20220721
  Serious: Yes (Other)
  Sender: FDA-Public Use
  Company Number: US-BRISTOL-MYERS SQUIBB COMPANY-2022-058026

PATIENT
  Age: 66 Year
  Sex: Female

DRUGS (1)
  1. OPDIVO [Suspect]
     Active Substance: NIVOLUMAB
     Indication: Prostate cancer
     Dosage: DOSE : 480 MG;     FREQ : ^EVERY 28 DAYS^
     Route: 042
     Dates: end: 20220606

REACTIONS (2)
  - Drug ineffective [Unknown]
  - Intentional product use issue [Unknown]
